FAERS Safety Report 14166516 (Version 3)
Quarter: 2018Q1

REPORT INFORMATION
  Report Type: Report from Study
  Country: CA (occurrence: CA)
  Receive Date: 20171107
  Receipt Date: 20180106
  Transmission Date: 20180508
  Serious: Yes (Hospitalization)
  Sender: FDA-Public Use
  Company Number: PHHY2017CA145503

PATIENT
  Age: 42 Year
  Sex: Male

DRUGS (1)
  1. GILENYA [Suspect]
     Active Substance: FINGOLIMOD HYDROCHLORIDE
     Indication: PRODUCT USED FOR UNKNOWN INDICATION
     Dosage: UNK
     Route: 048
     Dates: start: 20170928

REACTIONS (12)
  - Multiple sclerosis relapse [Recovering/Resolving]
  - Asthenia [Unknown]
  - Gait disturbance [Recovering/Resolving]
  - Hypoaesthesia [Recovering/Resolving]
  - Headache [Unknown]
  - Balance disorder [Unknown]
  - Peripheral swelling [Recovered/Resolved]
  - Erythema [Recovering/Resolving]
  - Fatigue [Unknown]
  - Pruritus [Recovering/Resolving]
  - Hemiparesis [Unknown]
  - Heart rate decreased [Unknown]

NARRATIVE: CASE EVENT DATE: 20171001
